FAERS Safety Report 4994806-8 (Version None)
Quarter: 2006Q2

REPORT INFORMATION
  Report Type: 
  Country: None (occurrence: None)
  Receive Date: 20060503
  Receipt Date: 20060420
  Transmission Date: 20061013
  Serious: Yes (Other)
  Sender: FDA-Public Use
  Company Number: 2006020207

PATIENT
  Sex: Female

DRUGS (8)
  1. NORVASC [Suspect]
     Indication: HYPERTENSION
     Dosage: 5 MG (5 MG, QD INTERVAL: EVERY DAY), ORAL
     Route: 048
     Dates: start: 20050901
  2. LOPRESSOR [Suspect]
     Indication: HYPERTENSION
     Dosage: ORAL
     Route: 048
     Dates: start: 20050901, end: 20051201
  3. ALTACE [Suspect]
     Indication: HYPERTENSION
     Dosage: 10 MG, ORAL
     Route: 048
  4. DIOVAN [Suspect]
     Indication: HYPERTENSION
     Dosage: SEE IMAGE
     Route: 048
     Dates: start: 20051201
  5. PROCARDIA [Suspect]
     Indication: ILL-DEFINED DISORDER
     Dosage: 90 MG, ORAL
     Route: 048
  6. AVALIDE [Concomitant]
  7. FLOVENT [Concomitant]
  8. MONTELUKAST (MONTELUKAST) [Concomitant]

REACTIONS (14)
  - BURNING SENSATION [None]
  - CHEST PAIN [None]
  - CHOLELITHIASIS [None]
  - DIFFICULTY IN WALKING [None]
  - DYSPNOEA [None]
  - ELECTROLYTE IMBALANCE [None]
  - FALL [None]
  - GASTRIC POLYPS [None]
  - GOUT [None]
  - HEAD INJURY [None]
  - HEADACHE [None]
  - JOINT INJURY [None]
  - MYELOPATHY [None]
  - OESOPHAGITIS [None]
